FAERS Safety Report 7000396-0 (Version None)
Quarter: 2010Q3

REPORT INFORMATION
  Report Type: 
  Country: None (occurrence: None)
  Receive Date: 20100920
  Receipt Date: 20100723
  Transmission Date: 20110219
  Serious: No
  Sender: FDA-Public Use
  Company Number: US-ASTRAZENECA-2010SE34484

PATIENT
  Age: 42 Year
  Sex: Female
  Weight: 68 kg

DRUGS (5)
  1. SEROQUEL [Suspect]
     Route: 048
  2. SEROQUEL [Suspect]
     Route: 048
     Dates: start: 20100721, end: 20100721
  3. LAMICTAL [Concomitant]
  4. LUNESTA [Concomitant]
  5. STRATTERA [Concomitant]

REACTIONS (7)
  - ADVERSE REACTION [None]
  - DISTURBANCE IN ATTENTION [None]
  - DYSARTHRIA [None]
  - HEAD DISCOMFORT [None]
  - INCORRECT DOSE ADMINISTERED [None]
  - MALAISE [None]
  - SENSATION OF HEAVINESS [None]
